FAERS Safety Report 5117599-2 (Version None)
Quarter: 2006Q3

REPORT INFORMATION
  Report Type: 
  Country: None (occurrence: None)
  Receive Date: 20060929
  Receipt Date: 20060920
  Transmission Date: 20061208
  Serious: Yes (Other)
  Sender: FDA-Public Use
  Company Number: JP-ROCHE-464528

PATIENT
  Age: 70 Year
  Sex: Female

DRUGS (8)
  1. ROCEPHIN [Suspect]
     Indication: PYELONEPHRITIS ACUTE
     Route: 042
     Dates: start: 20060915, end: 20060919
  2. DIOVAN [Concomitant]
     Route: 048
  3. MEROPEN [Concomitant]
     Dosage: GENERIC NAME REPORTED AS: MEROPENEM TRIHYDRATE.
     Route: 041
  4. NPH INSULIN [Concomitant]
     Dosage: ROUTE REPORTED AS: INJECTABLE (NOT OTHERWISE SPECIFIED).
     Route: 050
  5. METFORMIN HYDROCHLORIDE [Concomitant]
     Dosage: DRUG NAME REPORTED AS: MEDET (METFORMIN HYDROCHLORIDE).
     Route: 048
  6. ZYRTEC [Concomitant]
     Dosage: FORM REPORTED AS: ORAL FORMULATION (NOT OTHERWISE SPECIFIED).
     Route: 048
  7. BUP-4 [Concomitant]
     Dosage: FORM REPORTED AS: ORAL FORMULATION (NOT OTHERWISE SPECIFIED). GERNIC REPORTED AS: PROPIVERINE HYDRO+
     Route: 048
  8. TRICOR [Concomitant]
     Route: 048

REACTIONS (2)
  - ANXIETY [None]
  - RENAL FAILURE ACUTE [None]
